FAERS Safety Report 21498596 (Version 3)
Quarter: 2022Q4

REPORT INFORMATION
  Report Type: Spontaneous
  Country: US (occurrence: None)
  Receive Date: 20221024
  Receipt Date: 20221117
  Transmission Date: 20230113
  Serious: Yes (Death, Other)
  Sender: FDA-Public Use
  Company Number: 2022A353568

PATIENT
  Age: 8 Year
  Sex: Female

DRUGS (4)
  1. ANDEXXA [Suspect]
     Active Substance: ANDEXANET ALFA
     Route: 040
  2. APIXABAN [Concomitant]
     Active Substance: APIXABAN
  3. MILRINONE [Concomitant]
     Active Substance: MILRINONE
  4. PROTAMINE [Concomitant]
     Active Substance: PROTAMINE

REACTIONS (4)
  - Pulmonary embolism [Fatal]
  - Acute right ventricular failure [Unknown]
  - Hypercoagulation [Fatal]
  - Off label use [Fatal]
